FAERS Safety Report 7551692-X (Version None)
Quarter: 2011Q2

REPORT INFORMATION
  Report Type: 
  Country: None (occurrence: None)
  Receive Date: 20110616
  Receipt Date: 20110610
  Transmission Date: 20111010
  Serious: Yes (Other)
  Sender: FDA-Public Use
  Company Number: US-GILEAD-2011-0036974

PATIENT
  Sex: Female

DRUGS (1)
  1. LETAIRIS [Suspect]
     Indication: PORTOPULMONARY HYPERTENSION
     Route: 048
     Dates: start: 20110131

REACTIONS (7)
  - LIVER FUNCTION TEST ABNORMAL [None]
  - NAUSEA [None]
  - RASH [None]
  - PRURITUS [None]
  - DIZZINESS [None]
  - DEAFNESS [None]
  - BLINDNESS [None]
